FAERS Safety Report 9447960 (Version 1)
Quarter: 2013Q3

REPORT INFORMATION
  Report Type: Report from Study
  Country: US (occurrence: US)
  Receive Date: 20130808
  Receipt Date: 20130808
  Transmission Date: 20140515
  Serious: Yes (Hospitalization)
  Sender: FDA-Public Use
  Company Number: PHHY2013US084673

PATIENT
  Age: 29 Year
  Sex: Female
  Weight: 90.7 kg

DRUGS (6)
  1. GILENYA [Suspect]
     Indication: MULTIPLE SCLEROSIS
     Dosage: 0.5 MG, QD
     Route: 048
     Dates: start: 20110906
  2. GILENYA [Suspect]
     Dosage: 0.5 MG, QD
     Route: 048
     Dates: start: 20120710
  3. SEROQUEL [Concomitant]
     Indication: DEPRESSION
  4. RISPERIDONE [Concomitant]
  5. CYMBALTA [Concomitant]
     Indication: DEPRESSION
     Dosage: 30 MG, UNK
  6. AMLODIPINE [Concomitant]

REACTIONS (2)
  - Neuralgia [Unknown]
  - Facial pain [Recovering/Resolving]
